FAERS Safety Report 15727606 (Version 1)
Quarter: 2018Q4

REPORT INFORMATION
  Report Type: Spontaneous
  Country: US (occurrence: US)
  Receive Date: 20181217
  Receipt Date: 20181217
  Transmission Date: 20190205
  Serious: No
  Sender: FDA-Public Use
  Company Number: US-NOVEN PHARMACEUTICALS, INC.-US2017001324

PATIENT

DRUGS (5)
  1. MINIVELLE [Suspect]
     Active Substance: ESTRADIOL
     Indication: HOT FLUSH
     Dosage: 0.05 MG (A PATCH FOR 3-4 DAYS), UNK
     Route: 062
  2. MINIVELLE [Suspect]
     Active Substance: ESTRADIOL
     Dosage: 0.05 MG (A PATCH FOR EIGHT DAYS), UNK
     Route: 062
     Dates: start: 2017
  3. PROGESTERONE. [Concomitant]
     Active Substance: PROGESTERONE
  4. MINIVELLE [Suspect]
     Active Substance: ESTRADIOL
     Indication: MENOPAUSE
     Dosage: 0.05 MG (A PATCH FOR FIVE DAYS), UNK
     Route: 062
  5. MINIVELLE [Suspect]
     Active Substance: ESTRADIOL
     Dosage: 0.05 MG (A PATCH FOR SIX DAYS), UNK
     Route: 062

REACTIONS (6)
  - Inappropriate schedule of product administration [Recovered/Resolved]
  - Product adhesion issue [Recovered/Resolved]
  - Product dose omission [Recovered/Resolved]
  - Metrorrhagia [Unknown]
  - Product quality issue [Not Recovered/Not Resolved]
  - Off label use [Not Recovered/Not Resolved]

NARRATIVE: CASE EVENT DATE: 2017
